FAERS Safety Report 13120986 (Version 1)
Quarter: 2017Q1

REPORT INFORMATION
  Report Type: Spontaneous
  Country: US (occurrence: US)
  Receive Date: 20170113
  Receipt Date: 20170113
  Transmission Date: 20170428
  Serious: No
  Sender: FDA-Public Use
  Company Number: None

PATIENT
  Age: 5 Year
  Sex: Female
  Weight: 21.6 kg

DRUGS (7)
  1. TYLENOL [Concomitant]
     Active Substance: ACETAMINOPHEN
  2. AZITHROMYCIN ANHYDROUS. [Suspect]
     Active Substance: AZITHROMYCIN ANHYDROUS
     Indication: CONJUNCTIVITIS
     Dosage: ?          QUANTITY:5.5 TEASPOON(S);?
     Route: 048
     Dates: start: 20170104, end: 20170109
  3. AZITHROMYCIN ANHYDROUS. [Suspect]
     Active Substance: AZITHROMYCIN ANHYDROUS
     Indication: PULMONARY CONGESTION
     Dosage: ?          QUANTITY:5.5 TEASPOON(S);?
     Route: 048
     Dates: start: 20170104, end: 20170109
  4. IBUPROFEN. [Concomitant]
     Active Substance: IBUPROFEN
  5. ERYTHROMYCIN. [Concomitant]
     Active Substance: ERYTHROMYCIN
  6. HUMALOG [Concomitant]
     Active Substance: INSULIN LISPRO
  7. BENADRYL [Concomitant]
     Active Substance: DIPHENHYDRAMINE HYDROCHLORIDE

REACTIONS (3)
  - Vomiting [None]
  - Abdominal pain upper [None]
  - Headache [None]

NARRATIVE: CASE EVENT DATE: 20170109
